FAERS Safety Report 10006214 (Version 1)
Quarter: 2014Q1

REPORT INFORMATION
  Report Type: Spontaneous
  Country: FR (occurrence: FR)
  Receive Date: 20140313
  Receipt Date: 20140313
  Transmission Date: 20141002
  Serious: Yes (Death, Hospitalization)
  Sender: FDA-Public Use
  Company Number: FR-PFIZER INC-2014072023

PATIENT
  Age: 89 Year
  Sex: Female

DRUGS (9)
  1. CORDARONE [Suspect]
     Indication: ATRIAL FIBRILLATION
     Dosage: UNK
     Route: 048
     Dates: start: 201311, end: 20131107
  2. PRADAXA [Interacting]
     Indication: ATRIAL FIBRILLATION
     Dosage: UNK
     Route: 048
     Dates: start: 201311, end: 20131107
  3. ATENOLOL [Concomitant]
  4. CORTANCYL [Concomitant]
  5. LEXOMIL [Concomitant]
  6. STILNOX [Concomitant]
  7. CO OLMETEC [Concomitant]
  8. XATRAL [Concomitant]
  9. EXELON [Concomitant]

REACTIONS (2)
  - Drug interaction [Fatal]
  - Shock haemorrhagic [Fatal]
